FAERS Safety Report 18920423 (Version 1)
Quarter: 2021Q1

REPORT INFORMATION
  Report Type: Spontaneous
  Country: FR (occurrence: FR)
  Receive Date: 20210222
  Receipt Date: 20210222
  Transmission Date: 20210420
  Serious: Yes (Hospitalization, Other)
  Sender: FDA-Public Use
  Company Number: FR-AMGEN-FRASP2021025365

PATIENT
  Age: 77 Year
  Sex: Male
  Weight: 64 kg

DRUGS (9)
  1. ATORVASTATIN [Suspect]
     Active Substance: ATORVASTATIN
     Indication: CARDIOVASCULAR EVENT PROPHYLAXIS
     Dosage: 40 MILLIGRAM, QD
     Route: 048
  2. FUROSEMIDE. [Suspect]
     Active Substance: FUROSEMIDE
     Indication: CARDIOMYOPATHY
     Dosage: 375 MILLIGRAM, QD
     Route: 048
  3. KARDEGIC [Suspect]
     Active Substance: ASPIRIN DL-LYSINE
     Indication: CARDIOVASCULAR EVENT PROPHYLAXIS
     Dosage: 75 MILLIGRAM, QD
     Route: 048
  4. ALLOPURINOL. [Suspect]
     Active Substance: ALLOPURINOL
     Indication: GOUT
     Dosage: 100 MILLIGRAM, QD
     Route: 048
  5. PROCORALAN [Suspect]
     Active Substance: IVABRADINE
     Dosage: UNK
     Route: 065
  6. AMIODARONE [Suspect]
     Active Substance: AMIODARONE
     Indication: CARDIOMYOPATHY
     Dosage: 200 MILLIGRAM, QD
     Route: 048
     Dates: start: 202011, end: 20210125
  7. RAMIPRIL. [Suspect]
     Active Substance: RAMIPRIL
     Indication: CARDIOMYOPATHY
     Dosage: 10 MILLIGRAM, QD
     Route: 048
     Dates: start: 202011, end: 20210125
  8. ALDACTONE [POTASSIUM CANRENOATE] [Suspect]
     Active Substance: CANRENOATE POTASSIUM
     Indication: CARDIOMYOPATHY
     Dosage: 12.5 MILLIGRAM, QD
     Route: 048
     Dates: start: 202011, end: 20210125
  9. PROCORALAN [Suspect]
     Active Substance: IVABRADINE
     Indication: CARDIOMYOPATHY
     Dosage: 5 MILLIGRAM, QD
     Route: 048
     Dates: start: 202011

REACTIONS (2)
  - Dermatitis exfoliative generalised [Recovering/Resolving]
  - Eosinophilia [Recovered/Resolved]

NARRATIVE: CASE EVENT DATE: 202012
